FAERS Safety Report 8012476-1 (Version None)
Quarter: 2011Q4

REPORT INFORMATION
  Report Type: 
  Country: None (occurrence: None)
  Receive Date: 20111228
  Receipt Date: 20111215
  Transmission Date: 20120403
  Serious: Yes (Other)
  Sender: FDA-Public Use
  Company Number: GB-RANBAXY-2011R1-50796

PATIENT
  Age: 21 Year
  Sex: Female

DRUGS (2)
  1. RISPERIDONE [Suspect]
     Indication: DISTURBANCE IN SOCIAL BEHAVIOUR
     Dosage: UNK
     Route: 048
     Dates: start: 20100415
  2. RISPERIDONE [Suspect]
     Dosage: UNK
     Route: 048
     Dates: start: 20100708, end: 20100929

REACTIONS (2)
  - DISTURBANCE IN SOCIAL BEHAVIOUR [None]
  - OCULOGYRIC CRISIS [None]
